FAERS Safety Report 7286738-X (Version None)
Quarter: 2011Q1

REPORT INFORMATION
  Report Type: 
  Country: None (occurrence: None)
  Receive Date: 20110210
  Receipt Date: 20110131
  Transmission Date: 20110831
  Serious: Yes (Death)
  Sender: FDA-Public Use
  Company Number: JP-AMGEN-JPNCT2010010629

PATIENT
  Age: 57 Year
  Sex: Male
  Weight: 58 kg

DRUGS (17)
  1. ZOLOFT [Concomitant]
     Route: 048
  2. OXYCONTIN [Concomitant]
     Route: 048
  3. PANITUMUMAB [Suspect]
     Indication: COLORECTAL CANCER
     Dosage: 6 MG/KG, Q2WK
     Route: 041
     Dates: start: 20100823, end: 20100907
  4. MOBIC [Concomitant]
     Route: 048
  5. ADJUST-A KOWA [Concomitant]
     Route: 048
  6. SAHNE [Concomitant]
     Route: 062
  7. RIVOTRIL [Concomitant]
     Route: 048
  8. LOCOID                             /00028601/ [Concomitant]
     Route: 062
  9. HIRUDOID                           /00723701/ [Concomitant]
     Route: 062
  10. PLETAL [Concomitant]
     Route: 048
  11. OXINORM [Concomitant]
     Route: 048
  12. MAGMITT [Concomitant]
     Route: 048
  13. MYSLEE [Concomitant]
     Route: 048
  14. MYSER                              /00115501/ [Concomitant]
     Route: 062
  15. PETROLATUM [Concomitant]
     Route: 062
  16. MUCOSTA [Concomitant]
     Route: 048
  17. GABAPEN [Concomitant]
     Route: 048

REACTIONS (1)
  - DEATH [None]
